FAERS Safety Report 15108801 (Version 1)
Quarter: 2018Q3

REPORT INFORMATION
  Report Type: Spontaneous
  Country: US (occurrence: US)
  Receive Date: 20180705
  Receipt Date: 20180705
  Transmission Date: 20181010
  Serious: No
  Sender: FDA-Public Use
  Company Number: US-GLENMARK PHARMACEUTICALS-2018GMK034604

PATIENT

DRUGS (1)
  1. MUPIROCIN. [Suspect]
     Active Substance: MUPIROCIN
     Indication: SEBORRHOEIC DERMATITIS
     Dosage: UNK, BID
     Route: 061
     Dates: end: 20180410

REACTIONS (5)
  - Product use in unapproved indication [Unknown]
  - Product administered at inappropriate site [Unknown]
  - Accidental exposure to product packaging [Unknown]
  - Product container issue [Unknown]
  - Skin exfoliation [Recovering/Resolving]

NARRATIVE: CASE EVENT DATE: 20180410
